FAERS Safety Report 6795248-5 (Version None)
Quarter: 2010Q2

REPORT INFORMATION
  Report Type: 
  Country: None (occurrence: None)
  Receive Date: 20100625
  Receipt Date: 20100617
  Transmission Date: 20101027
  Serious: Yes (Disabling)
  Sender: FDA-Public Use
  Company Number: JP-ASTRAZENECA-2010SE25299

PATIENT
  Age: 18011 Day
  Sex: Female
  Weight: 62 kg

DRUGS (8)
  1. SYMBICORT [Suspect]
     Indication: ASTHMA
     Dosage: 4 DF, TWO TIMES A DAY.
     Route: 055
     Dates: start: 20100510
  2. DECACORT [Concomitant]
     Route: 041
     Dates: start: 20091030, end: 20091031
  3. PREDONINE [Concomitant]
     Route: 048
     Dates: start: 20091030, end: 20091109
  4. TULOBUTEROL [Concomitant]
     Route: 062
     Dates: start: 20091030, end: 20091103
  5. ADOAIR [Concomitant]
     Route: 055
     Dates: start: 20091104, end: 20100501
  6. THEO-SLOW [Concomitant]
     Route: 048
     Dates: start: 20091109, end: 20091115
  7. KIPRES [Concomitant]
     Route: 048
     Dates: start: 20091113, end: 20100609
  8. AZELASTINE HCL [Concomitant]
     Route: 048
     Dates: start: 20100416, end: 20100609

REACTIONS (1)
  - TREMOR [None]
